FAERS Safety Report 16968572 (Version 2)
Quarter: 2020Q1

REPORT INFORMATION
  Report Type: Spontaneous
  Country: NL (occurrence: NL)
  Receive Date: 20191029
  Receipt Date: 20200129
  Transmission Date: 20200409
  Serious: Yes (Life-Threatening, Other)
  Sender: FDA-Public Use
  Company Number: NL-SA-2019SA295461

PATIENT
  Age: 58 Year
  Sex: Female
  Weight: 75 kg

DRUGS (12)
  1. DUPIXENT [Suspect]
     Active Substance: DUPILUMAB
     Indication: ASTHMA
     Dosage: 300MG
     Route: 058
     Dates: start: 20190904, end: 20190918
  2. FLUTICASON [Concomitant]
     Active Substance: FLUTICASONE
     Dosage: 250 UG, Q12H (2 D 20 MG)
  3. PARACETAMOL [Concomitant]
     Active Substance: ACETAMINOPHEN
     Dosage: 1000 MG, Q6H; 4 D 1000 MG
  4. ESOMEPRAZOL [ESOMEPRAZOLE] [Concomitant]
     Active Substance: ESOMEPRAZOLE
     Dosage: 20 MG, QD, 1 D 20 MG
  5. IBUPROFEN. [Concomitant]
     Active Substance: IBUPROFEN
     Dosage: 400 MG, Q8H; 3 D 400 MG
  6. AUGMENTIN [Concomitant]
     Active Substance: AMOXICILLIN\CLAVULANATE POTASSIUM
     Dosage: 1 DF, Q8H, 3D 625MG
  7. BECLOMETASONE;FORMOTEROL [Concomitant]
     Active Substance: BECLOMETHASONE\FORMOTEROL
     Dosage: 2 DF, Q12H, 2 D 2
  8. PREDNISOLONE. [Concomitant]
     Active Substance: PREDNISOLONE
     Dosage: 20 MG, Q12H (2 D 20 MG)
  9. CARBOMER [Concomitant]
     Active Substance: CARBOMER
     Dosage: 1 DF, QD
  10. FLUTICASON [Concomitant]
     Active Substance: FLUTICASONE
     Dosage: 1 DF, Q12H; 2DD
  11. MOVICOLON [Concomitant]
     Active Substance: POLYETHYLENE GLYCOL 3350\POTASSIUM CHLORIDE\SODIUM BICARBONATE\SODIUM CHLORIDE
     Dosage: UNK, ZN
  12. CALCIUM CARBONATE;CHOLECALCIFEROL;SODIUM [Concomitant]
     Dosage: 1 DF, QD

REACTIONS (1)
  - Cardiac arrest [Recovering/Resolving]

NARRATIVE: CASE EVENT DATE: 20191013
